FAERS Safety Report 9412004 (Version 1)
Quarter: 2013Q3

REPORT INFORMATION
  Report Type: Spontaneous
  Country: US (occurrence: US)
  Receive Date: 20130722
  Receipt Date: 20130722
  Transmission Date: 20140515
  Serious: No
  Sender: FDA-Public Use
  Company Number: US-BAYER-2013-088103

PATIENT
  Age: 71 Year
  Sex: Male
  Weight: 83.9 kg

DRUGS (12)
  1. ALEVE CAPLET [Suspect]
     Indication: ARTHRITIS
     Dosage: 1 DF, TID
     Route: 048
     Dates: start: 2013
  2. AMLODIPINE [Concomitant]
  3. LISINOPRIL [Concomitant]
  4. METOPROLOL [Concomitant]
  5. LUTEIN [Concomitant]
  6. VITAMIN D3 [Concomitant]
  7. CHROMIUM PICOLINATE [Concomitant]
  8. CO Q10 [Concomitant]
  9. VITAMIN B COMPLEX [Concomitant]
  10. ZOLOFT [Concomitant]
  11. MESALAMINE [Concomitant]
  12. LASIX [Concomitant]

REACTIONS (1)
  - Drug ineffective [None]
